FAERS Safety Report 9937904 (Version 1)
Quarter: 2014Q1

REPORT INFORMATION
  Report Type: Spontaneous
  Country: US (occurrence: US)
  Receive Date: 20140303
  Receipt Date: 20140303
  Transmission Date: 20141002
  Serious: No
  Sender: FDA-Public Use
  Company Number: US-BIOGENIDEC-2014BI016860

PATIENT
  Age: 40 Year
  Sex: Female

DRUGS (8)
  1. TECFIDERA [Suspect]
     Indication: MULTIPLE SCLEROSIS
     Dates: start: 201401, end: 201401
  2. TECFIDERA [Suspect]
     Indication: MULTIPLE SCLEROSIS
     Dates: start: 20140201
  3. TECFIDERA [Suspect]
     Indication: MULTIPLE SCLEROSIS
     Route: 048
     Dates: start: 20140215, end: 20140216
  4. TECFIDERA [Suspect]
     Indication: MULTIPLE SCLEROSIS
  5. ADVIL [Concomitant]
  6. HYDROCHLOROTHIAZIDE [Concomitant]
  7. PRILOSEC [Concomitant]
  8. TYLENOL [Concomitant]

REACTIONS (5)
  - Dehydration [Not Recovered/Not Resolved]
  - Flushing [Recovered/Resolved]
  - Diarrhoea [Not Recovered/Not Resolved]
  - Nausea [Not Recovered/Not Resolved]
  - Abdominal discomfort [Unknown]
